FAERS Safety Report 13456307 (Version 1)
Quarter: 2017Q2

REPORT INFORMATION
  Report Type: Spontaneous
  Country: FR (occurrence: FR)
  Receive Date: 20170418
  Receipt Date: 20170418
  Transmission Date: 20170830
  Serious: Yes (Other)
  Sender: FDA-Public Use
  Company Number: PHHY2017FR053975

PATIENT
  Age: 69 Year
  Sex: Female

DRUGS (1)
  1. AMOXICILLIN SANDOZ [Suspect]
     Active Substance: AMOXICILLIN
     Indication: SINUSITIS
     Dosage: 1 DF, TID
     Route: 048
     Dates: start: 20170330, end: 20170402

REACTIONS (5)
  - Acne [Recovering/Resolving]
  - Pruritus [Recovered/Resolved]
  - Burning sensation [Recovered/Resolved]
  - Skin exfoliation [Not Recovered/Not Resolved]
  - Drug hypersensitivity [Unknown]

NARRATIVE: CASE EVENT DATE: 20170402
